FAERS Safety Report 9068422 (Version 1)
Quarter: 2013Q1

REPORT INFORMATION
  Report Type: Spontaneous
  Country: US (occurrence: US)
  Receive Date: 20130128
  Receipt Date: 20130128
  Transmission Date: 20140127
  Serious: Yes (Death)
  Sender: FDA-Public Use
  Company Number: PHHY2013US006787

PATIENT
  Age: 98 Year
  Sex: Female

DRUGS (2)
  1. METOPROLOL [Suspect]
     Dosage: UNK UKN, UNK
  2. UNSPECIFIED [Suspect]
     Dosage: UNK UKN, UNK

REACTIONS (3)
  - Drug therapeutic incompatibility [Fatal]
  - Medication error [None]
  - Cardioactive drug level increased [None]
